FAERS Safety Report 12726125 (Version 1)
Quarter: 2016Q3

REPORT INFORMATION
  Report Type: Other
  Country: CN (occurrence: CN)
  Receive Date: 20160908
  Receipt Date: 20160908
  Transmission Date: 20161109
  Serious: Yes (Hospitalization, Other)
  Sender: FDA-Public Use
  Company Number: CN-ENDO PHARMACEUTICALS INC-2016-005433

PATIENT
  Age: 49 Year
  Sex: Male

DRUGS (1)
  1. DIAZEPAM. [Suspect]
     Active Substance: DIAZEPAM
     Indication: PRODUCT USED FOR UNKNOWN INDICATION
     Route: 048

REACTIONS (4)
  - Intentional overdose [Recovered/Resolved]
  - Pulmonary embolism [Recovered/Resolved]
  - Pneumonia aspiration [Unknown]
  - Electrocardiogram QT prolonged [Unknown]

NARRATIVE: CASE EVENT DATE: 201405
